FAERS Safety Report 10110027 (Version 1)
Quarter: 2014Q2

REPORT INFORMATION
  Report Type: Spontaneous
  Country: US (occurrence: None)
  Receive Date: 20140423
  Receipt Date: 20140423
  Transmission Date: 20141212
  Serious: Yes (Other)
  Sender: FDA-Public Use
  Company Number: SYM-2014-19800

PATIENT
  Age: 24 Year
  Sex: Male

DRUGS (1)
  1. XENAZINE (TETRABENAZINE) (12.5 MILLIGRAM, TABLET) (TETRABENAZINE) [Suspect]
     Indication: DYSKINESIA
     Dosage: 25 MG, 2 IN 1 D, ORAL
     Route: 048
     Dates: start: 201303

REACTIONS (3)
  - Suicidal ideation [None]
  - Panic reaction [None]
  - Thinking abnormal [None]
